FAERS Safety Report 11937098 (Version 1)
Quarter: 2016Q1

REPORT INFORMATION
  Report Type: Spontaneous
  Country: FR (occurrence: FR)
  Receive Date: 20160121
  Receipt Date: 20160121
  Transmission Date: 20160526
  Serious: Yes (Hospitalization)
  Sender: FDA-Public Use
  Company Number: FR-MALLINCKRODT-T201204699

PATIENT
  Age: 9 Year
  Sex: Female

DRUGS (9)
  1. BRISTOPEN [Suspect]
     Active Substance: OXACILLIN SODIUM
     Indication: ABSCESS
     Route: 065
     Dates: start: 20121005, end: 20121011
  2. AMIKACIN SULFATE. [Suspect]
     Active Substance: AMIKACIN SULFATE
     Indication: ABSCESS
     Route: 065
     Dates: start: 20121002, end: 20121004
  3. AMOXICILLIN. [Suspect]
     Active Substance: AMOXICILLIN
     Indication: ABSCESS
     Route: 048
     Dates: start: 20121002, end: 20121005
  4. ORBENINE [Suspect]
     Active Substance: CLOXACILLIN SODIUM
     Indication: ABSCESS
     Dosage: UNK
     Route: 065
     Dates: start: 20121011, end: 20121024
  5. CODENFAN [Suspect]
     Active Substance: CODEINE
     Indication: PAIN
     Dosage: 1DF:1MG/ML SYRUP
     Route: 065
     Dates: start: 20120924, end: 20120925
  6. RIFADINE                           /00146901/ [Suspect]
     Active Substance: RIFAMPIN
     Indication: ABSCESS
     Route: 065
     Dates: start: 20121025, end: 20121029
  7. COLCHICINE. [Suspect]
     Active Substance: COLCHICINE
     Indication: PERICARDITIS
     Route: 048
     Dates: start: 20121002, end: 20121024
  8. DALCINE /00166002/ [Suspect]
     Active Substance: CLINDAMYCIN HYDROCHLORIDE
     Indication: ABSCESS
     Route: 065
     Dates: start: 20121002, end: 20121024
  9. OFIRMEV [Suspect]
     Active Substance: ACETAMINOPHEN
     Indication: PYREXIA
     Route: 042
     Dates: start: 20120924, end: 20120925

REACTIONS (1)
  - Drug reaction with eosinophilia and systemic symptoms [Recovered/Resolved]

NARRATIVE: CASE EVENT DATE: 20121026
